FAERS Safety Report 5093958-1 (Version None)
Quarter: 2006Q3

REPORT INFORMATION
  Report Type: 
  Country: None (occurrence: None)
  Receive Date: 20060829
  Receipt Date: 20060829
  Transmission Date: 20061208
  Serious: Yes (Disabling, Other)
  Sender: FDA-Public Use
  Company Number: None

PATIENT
  Age: 29 Year
  Sex: Male
  Weight: 70.7611 kg

DRUGS (1)
  1. AMBIEN [Suspect]
     Indication: INSOMNIA
     Dosage: 5 MG 10 MG 15 MG 1NIGHTLY PO
     Route: 048
     Dates: start: 20040101, end: 20060827

REACTIONS (9)
  - AMNESIA [None]
  - ARRHYTHMIA [None]
  - ASTHENIA [None]
  - FATIGUE [None]
  - FEELING ABNORMAL [None]
  - HEART RATE INCREASED [None]
  - MOOD SWINGS [None]
  - TREMOR [None]
  - WEIGHT DECREASED [None]
